FAERS Safety Report 23961666 (Version 2)
Quarter: 2024Q3

REPORT INFORMATION
  Report Type: Spontaneous
  Country: US (occurrence: US)
  Receive Date: 20240611
  Receipt Date: 20240708
  Transmission Date: 20241017
  Serious: No
  Sender: LUNDBECK
  Company Number: US-LUNDBECK-DKLU4000153

PATIENT

DRUGS (6)
  1. SABRIL [Suspect]
     Active Substance: VIGABATRIN
     Indication: Seizure
     Dosage: 500 003
     Route: 048
  2. SABRIL [Suspect]
     Active Substance: VIGABATRIN
     Dosage: 1000 003
     Route: 048
  3. PEPCID [Concomitant]
     Active Substance: FAMOTIDINE
  4. PEPCID [Concomitant]
     Active Substance: FAMOTIDINE
     Indication: Product used for unknown indication
  5. KLONOPIN [Concomitant]
     Active Substance: CLONAZEPAM
  6. KLONOPIN [Concomitant]
     Active Substance: CLONAZEPAM
     Indication: Product used for unknown indication

REACTIONS (4)
  - Abnormal behaviour [Unknown]
  - Irritability [Unknown]
  - Vomiting [Unknown]
  - Pain [Unknown]
